FAERS Safety Report 4634445-1 (Version None)
Quarter: 2005Q2

REPORT INFORMATION
  Report Type: 
  Country: None (occurrence: None)
  Receive Date: 20050411
  Receipt Date: 20050401
  Transmission Date: 20051028
  Serious: Yes (Death)
  Sender: FDA-Public Use
  Company Number: FRWYE553604APR05

PATIENT
  Age: 34 Year
  Sex: Male

DRUGS (4)
  1. EFFEXOR [Suspect]
     Indication: DEPRESSION
     Route: 048
  2. IMOVANE (ZOPICLONE) [Suspect]
     Indication: DEPRESSION
     Route: 048
     Dates: end: 20040727
  3. RISPERDAL [Concomitant]
  4. ALCOHOL (ETHANOL) [Concomitant]

REACTIONS (8)
  - CARBON MONOXIDE POISONING [None]
  - ERYTHEMA [None]
  - INTENTIONAL MISUSE [None]
  - PULMONARY CONGESTION [None]
  - PULMONARY HAEMORRHAGE [None]
  - PULMONARY OEDEMA [None]
  - SPLEEN CONGESTION [None]
  - SPLEEN DISORDER [None]
